FAERS Safety Report 5013667-4 (Version None)
Quarter: 2006Q2

REPORT INFORMATION
  Report Type: 
  Country: None (occurrence: None)
  Receive Date: 20060530
  Receipt Date: 20060529
  Transmission Date: 20061013
  Serious: Yes (Life-Threatening)
  Sender: FDA-Public Use
  Company Number: FR-GLAXOSMITHKLINE-B0425474A

PATIENT
  Age: 36 Year
  Sex: Male

DRUGS (6)
  1. AUGMENTIN '125' [Suspect]
     Indication: ANTIBIOTIC PROPHYLAXIS
     Route: 042
     Dates: end: 20060310
  2. ACUPAN [Concomitant]
     Route: 042
     Dates: start: 20060310, end: 20060310
  3. PROFENID [Concomitant]
     Route: 042
     Dates: start: 20060310, end: 20060310
  4. HYPNOVEL [Concomitant]
     Route: 042
     Dates: start: 20060310, end: 20060310
  5. DIPRIVAN [Concomitant]
     Route: 042
     Dates: start: 20060310, end: 20060310
  6. SUFENTA [Concomitant]
     Route: 042
     Dates: start: 20060310, end: 20060310

REACTIONS (5)
  - ANAPHYLACTOID REACTION [None]
  - CONNECTIVE TISSUE DISORDER [None]
  - GENERALISED ERYTHEMA [None]
  - HYPERSENSITIVITY [None]
  - HYPOTENSION [None]
